FAERS Safety Report 17269597 (Version 1)
Quarter: 2020Q1

REPORT INFORMATION
  Report Type: Spontaneous
  Country: FR (occurrence: FR)
  Receive Date: 20200114
  Receipt Date: 20200114
  Transmission Date: 20200409
  Serious: Yes (Other)
  Sender: FDA-Public Use
  Company Number: FR-MYLANLABS-2020M1003703

PATIENT
  Age: 70 Year
  Sex: Male

DRUGS (3)
  1. TARKA [Suspect]
     Active Substance: TRANDOLAPRIL\VERAPAMIL HYDROCHLORIDE
     Indication: HYPERTENSION
     Dosage: 2 DOSAGE FORM
     Route: 048
     Dates: end: 201909
  2. DOXYCYCLINE. [Suspect]
     Active Substance: DOXYCYCLINE
     Indication: INFECTION
     Dosage: 200 MILLIGRAM
     Route: 048
     Dates: start: 201907, end: 20190906
  3. RIFAMPICINE [Suspect]
     Active Substance: RIFAMPIN
     Indication: INFECTION
     Dosage: 900 MILLIGRAM
     Route: 048
     Dates: start: 201907, end: 20190906

REACTIONS (1)
  - Oedema [Not Recovered/Not Resolved]

NARRATIVE: CASE EVENT DATE: 20190906
